FAERS Safety Report 8332990-9 (Version None)
Quarter: 2012Q2

REPORT INFORMATION
  Report Type: 
  Country: None (occurrence: None)
  Receive Date: 20120503
  Receipt Date: 20120425
  Transmission Date: 20120825
  Serious: Yes (Other)
  Sender: FDA-Public Use
  Company Number: PHHY2012JP036559

PATIENT
  Sex: Male
  Weight: 56 kg

DRUGS (11)
  1. EXJADE [Suspect]
     Indication: IRON OVERLOAD
     Dosage: 1000 MG, DAILY
     Route: 048
     Dates: start: 20100302, end: 20100920
  2. LANTUS [Concomitant]
     Dosage: 6 IU, UNK
     Dates: start: 20100607, end: 20110302
  3. EXJADE [Suspect]
     Dosage: 500 MG, DAILY
     Route: 048
     Dates: start: 20110126, end: 20110302
  4. NEORAL [Concomitant]
     Indication: MYELODYSPLASTIC SYNDROME
     Dosage: 100 MG, UNK
     Dates: start: 20100302, end: 20110302
  5. LANIRAPID [Concomitant]
     Dosage: 0.1 MG, UNK
     Route: 048
     Dates: start: 20100302, end: 20110302
  6. COTRIM [Concomitant]
     Indication: PROPHYLAXIS
     Dosage: UNK UKN, UNK
     Dates: start: 20100302, end: 20110302
  7. VERAPAMIL HCL [Concomitant]
     Dosage: 120 MG, UNK
     Route: 048
     Dates: start: 20100302, end: 20110302
  8. DILTIAZEM HCL [Concomitant]
     Dosage: 100 MG, UNK
     Route: 048
     Dates: start: 20100302, end: 20110302
  9. WARFARIN SODIUM [Concomitant]
     Dosage: 3 MG, UNK
     Dates: start: 20100302, end: 20110302
  10. PREDNISOLONE [Concomitant]
     Indication: MYELODYSPLASTIC SYNDROME
     Dosage: 10 MG, UNK
     Route: 048
     Dates: start: 20100302, end: 20110302
  11. SUNRYTHM [Concomitant]
     Dosage: 150 MG, UNK
     Route: 048
     Dates: start: 20100302, end: 20110302

REACTIONS (2)
  - ATRIAL FIBRILLATION [None]
  - DIABETES MELLITUS [None]
